FAERS Safety Report 5910702-3 (Version None)
Quarter: 2008Q4

REPORT INFORMATION
  Report Type: 
  Country: None (occurrence: None)
  Receive Date: 20081006
  Receipt Date: 20081006
  Transmission Date: 20090506
  Serious: Yes (Other)
  Sender: FDA-Public Use
  Company Number: None

PATIENT
  Age: 50 Year
  Sex: Female
  Weight: 68.0396 kg

DRUGS (1)
  1. AVELOX [Suspect]
     Indication: BRONCHITIS
     Dosage: 1 TABLET ONE TIME PER DAY PO
     Route: 048
     Dates: start: 20080910, end: 20080915

REACTIONS (16)
  - ANOSMIA [None]
  - ANXIETY [None]
  - ARTHRALGIA [None]
  - CHROMATOPSIA [None]
  - DIPLOPIA [None]
  - DIZZINESS [None]
  - DYSPEPSIA [None]
  - FATIGUE [None]
  - HEADACHE [None]
  - HYPERACUSIS [None]
  - HYPOACUSIS [None]
  - MYALGIA [None]
  - PALPITATIONS [None]
  - PAROSMIA [None]
  - VISION BLURRED [None]
  - VISUAL IMPAIRMENT [None]
